FAERS Safety Report 7428621-2 (Version None)
Quarter: 2011Q2

REPORT INFORMATION
  Report Type: 
  Country: None (occurrence: None)
  Receive Date: 20110421
  Receipt Date: 20110411
  Transmission Date: 20111010
  Serious: Yes (Other)
  Sender: FDA-Public Use
  Company Number: JP-ASTRAZENECA-2011SE22121

PATIENT
  Age: 88 Year
  Sex: Female

DRUGS (3)
  1. GOODMIN [Suspect]
     Route: 048
  2. SEROQUEL [Suspect]
     Route: 048
     Dates: start: 20110107, end: 20110111
  3. SEROQUEL [Suspect]
     Route: 048
     Dates: start: 20110113, end: 20110113

REACTIONS (1)
  - TOXIC SKIN ERUPTION [None]
